FAERS Safety Report 22136784 (Version 1)
Quarter: 2023Q1

REPORT INFORMATION
  Report Type: Report from Study
  Country: DO (occurrence: DO)
  Receive Date: 20230324
  Receipt Date: 20230324
  Transmission Date: 20230418
  Serious: Yes (Disabling, Other)
  Sender: FDA-Public Use
  Company Number: DO-ABBVIE-4700490

PATIENT
  Age: 78 Year
  Sex: Female

DRUGS (3)
  1. HUMIRA [Suspect]
     Active Substance: ADALIMUMAB
     Indication: Rheumatoid arthritis
     Route: 058
     Dates: start: 20141229
  2. METFORMIN [Concomitant]
     Active Substance: METFORMIN HYDROCHLORIDE
     Indication: Diabetes mellitus
     Dosage: HALF TABLET
     Route: 048
  3. Oxigen? [Concomitant]
     Indication: Mental impairment
     Dosage: 10 DROP
     Route: 048
     Dates: start: 202301

REACTIONS (4)
  - Aphasia [Recovering/Resolving]
  - Disorientation [Recovering/Resolving]
  - Confusional state [Recovering/Resolving]
  - Mental impairment [Recovering/Resolving]

NARRATIVE: CASE EVENT DATE: 20230101
